FAERS Safety Report 17375517 (Version 1)
Quarter: 2020Q1

REPORT INFORMATION
  Report Type: Spontaneous
  Country: DE (occurrence: DE)
  Receive Date: 20200206
  Receipt Date: 20200206
  Transmission Date: 20200409
  Serious: Yes (Other)
  Sender: FDA-Public Use
  Company Number: DE-SA-2020SA028611

PATIENT
  Sex: Female

DRUGS (1)
  1. CLEXANE [Suspect]
     Active Substance: ENOXAPARIN SODIUM
     Indication: HAEMORRHAGE INTRACRANIAL
     Dosage: 0.4 ML
     Route: 058

REACTIONS (3)
  - Off label use [Unknown]
  - Coma [Unknown]
  - General physical health deterioration [Unknown]
